FAERS Safety Report 4587895-6 (Version None)
Quarter: 2005Q1

REPORT INFORMATION
  Report Type: 
  Country: None (occurrence: None)
  Receive Date: 20050125
  Receipt Date: 20040924
  Transmission Date: 20050727
  Serious: No
  Sender: FDA-Public Use
  Company Number: USA040979211

PATIENT
  Age: 58 Year
  Sex: Female
  Weight: 82 kg

DRUGS (6)
  1. FORTEO [Suspect]
     Indication: BONE DENSITY DECREASED
     Dosage: 20 UG/1 DAY
     Dates: start: 20040916
  2. PREVACID [Concomitant]
  3. EFFEXOR [Concomitant]
  4. CALCIUM GLUCONATE [Concomitant]
  5. OSCAL (CALCIUM CARBONATE) [Concomitant]
  6. VITAMIN D [Concomitant]

REACTIONS (2)
  - HEADACHE [None]
  - PAIN IN EXTREMITY [None]
